FAERS Safety Report 14528368 (Version 1)
Quarter: 2018Q1

REPORT INFORMATION
  Report Type: Spontaneous
  Country: US (occurrence: US)
  Receive Date: 20180214
  Receipt Date: 20180214
  Transmission Date: 20180509
  Serious: Yes (Hospitalization, Other)
  Sender: FDA-Public Use
  Company Number: US-ALKEM LABORATORIES LIMITED-US-ALKEM-2018-00412

PATIENT
  Age: 52 Year
  Sex: Female

DRUGS (1)
  1. QUETIAPINE FUMARATE. [Suspect]
     Active Substance: QUETIAPINE FUMARATE
     Indication: PRODUCT USED FOR UNKNOWN INDICATION
     Dosage: 1150 MG, APPROXIMATELY
     Route: 048

REACTIONS (3)
  - Eosinophilia [Recovered/Resolved]
  - Intentional overdose [Recovered/Resolved]
  - Pericarditis [Recovered/Resolved]
